FAERS Safety Report 16270466 (Version 2)
Quarter: 2019Q2

REPORT INFORMATION
  Report Type: Spontaneous
  Country: GB (occurrence: GB)
  Receive Date: 20190503
  Receipt Date: 20190523
  Transmission Date: 20190711
  Serious: Yes (Hospitalization, Other)
  Sender: FDA-Public Use
  Company Number: GB-MYLANLABS-2019M1042054

PATIENT
  Age: 84 Year
  Sex: Male

DRUGS (13)
  1. BUMETANIDE. [Concomitant]
     Active Substance: BUMETANIDE
     Dosage: 1 MILLIGRAM, AM,ONE TO BE TAKEN EACH MORNING
  2. FERROUS SULFATE. [Concomitant]
     Active Substance: FERROUS SULFATE
     Dosage: 400 MILLIGRAM, BID,ONE TO BE TAKEN TWICE A DAY
  3. AMLODIPINE [Concomitant]
     Active Substance: AMLODIPINE BESYLATE
     Dosage: 5 MILLIGRAM, QD,ONE TO BE TAKEN EACH DAY
  4. RANITIDINE. [Concomitant]
     Active Substance: RANITIDINE
     Dosage: 300 MILLIGRAM, QD,ONE TO BE TAKEN AT NIGHT
  5. ATENOLOL. [Concomitant]
     Active Substance: ATENOLOL
     Dosage: 100 MILLIGRAM, BID,1 TAB BD
  6. RAMIPRIL. [Concomitant]
     Active Substance: RAMIPRIL
     Dosage: 10 MILLIGRAM, QD,1 TAB BD
  7. GABAPENTIN. [Concomitant]
     Active Substance: GABAPENTIN
     Dosage: 1800 MILLIGRAM, QD,ONE TO BE TAKEN THREE TIMES A DAY
  8. OMEPRAZOLE. [Suspect]
     Active Substance: OMEPRAZOLE
     Dosage: 40 MILLIGRAM, QD (20 MG 2 TOTAL)
     Route: 048
  9. FINASTERIDE. [Concomitant]
     Active Substance: FINASTERIDE
     Dosage: 5 MILLIGRAM, QD,ONE TO BE TAKEN EACH DAY
  10. OMEPRAZOLE. [Suspect]
     Active Substance: OMEPRAZOLE
     Indication: GASTROINTESTINAL DISORDER PROPHYLAXIS
     Dosage: 20 MG DAILY
     Route: 048
     Dates: start: 20160809, end: 20180803
  11. CALCIUM CARBONATE W/COLECALCIFEROL [Concomitant]
     Active Substance: CALCIUM CARBONATE\CHOLECALCIFEROL
     Dosage: 2 DOSAGE FORM, QD,TWO CHEWABLE TABLETS PER DAY, PREFERABLY ONE TABLET EACH MORNING AND EVENING
  12. MONOMIL [Concomitant]
     Active Substance: ISOSORBIDE MONONITRATE
     Dosage: 1.5 DOSAGE FORM, QD,ONE AND A HALF DURULE EACH MORNING
  13. OXYCODONE [Concomitant]
     Active Substance: OXYCODONE
     Dosage: 3 MILLIGRAM, QD,ONE MANE AND 2 NOCTE

REACTIONS (4)
  - Post procedural complication [Unknown]
  - Spinal compression fracture [Recovered/Resolved]
  - Fall [Unknown]
  - Lumbar vertebral fracture [Unknown]

NARRATIVE: CASE EVENT DATE: 20180716
